FAERS Safety Report 7031989-2 (Version None)
Quarter: 2010Q4

REPORT INFORMATION
  Report Type: 
  Country: None (occurrence: None)
  Receive Date: 20101005
  Receipt Date: 20100924
  Transmission Date: 20110411
  Serious: Yes (Other)
  Sender: FDA-Public Use
  Company Number: TPA2010A05178

PATIENT
  Sex: Male

DRUGS (7)
  1. ADENURIC (FEBUXOSTAT) [Suspect]
     Dosage: 80 MG, 1 IN 1 D, ORAL
     Route: 048
     Dates: start: 20100501
  2. VITALUX (ASCORBIC ACID, RIBOFLAVIN, BETACAROTENE, COPPER, ZINC, SELENI [Concomitant]
  3. NIFEDIPINE [Concomitant]
  4. LESCOL [Concomitant]
  5. LANSOPRAZOLE [Concomitant]
  6. NOVOLOG [Concomitant]
  7. COZAAR [Concomitant]

REACTIONS (1)
  - BLISTER [None]
